FAERS Safety Report 8835785 (Version 9)
Quarter: 2014Q2

REPORT INFORMATION
  Report Type: Spontaneous
  Country: US (occurrence: US)
  Receive Date: 20121011
  Receipt Date: 20140612
  Transmission Date: 20141212
  Serious: Yes (Other)
  Sender: FDA-Public Use
  Company Number: US-ASTRAZENECA-2012SE75164

PATIENT
  Age: 53 Year
  Sex: Female
  Weight: 57.6 kg

DRUGS (22)
  1. SYMBICORT PMDI [Suspect]
     Indication: CHRONIC OBSTRUCTIVE PULMONARY DISEASE
     Dosage: 160/4.5 MCG, 2 PUFFS TWO TIMES A DAY
     Route: 055
     Dates: start: 2008
  2. SYMBICORT PMDI [Suspect]
     Indication: EMPHYSEMA
     Dosage: 160/4.5 MCG, 2 PUFFS TWO TIMES A DAY
     Route: 055
     Dates: start: 2008
  3. SYMBICORT PMDI [Suspect]
     Indication: ASTHMA
     Dosage: 160/4.5 MCG, 2 PUFFS TWO TIMES A DAY
     Route: 055
     Dates: start: 2008
  4. SYMBICORT PMDI [Suspect]
     Indication: MULTIPLE ALLERGIES
     Dosage: 160/4.5 MCG, 2 PUFFS TWO TIMES A DAY
     Route: 055
     Dates: start: 2008
  5. SYMBICORT PMDI [Suspect]
     Indication: CHRONIC OBSTRUCTIVE PULMONARY DISEASE
     Dosage: 160/4.5 MCG, 3 PUFFS, AS NEEDED
     Route: 055
     Dates: start: 2008
  6. SYMBICORT PMDI [Suspect]
     Indication: EMPHYSEMA
     Dosage: 160/4.5 MCG, 3 PUFFS, AS NEEDED
     Route: 055
     Dates: start: 2008
  7. SYMBICORT PMDI [Suspect]
     Indication: ASTHMA
     Dosage: 160/4.5 MCG, 3 PUFFS, AS NEEDED
     Route: 055
     Dates: start: 2008
  8. SYMBICORT PMDI [Suspect]
     Indication: MULTIPLE ALLERGIES
     Dosage: 160/4.5 MCG, 3 PUFFS, AS NEEDED
     Route: 055
     Dates: start: 2008
  9. SYMBICORT PMDI [Suspect]
     Indication: CHRONIC OBSTRUCTIVE PULMONARY DISEASE
     Dosage: 160/4.5 MICROGRAMS, UNKNOWN FREQUENCY
     Route: 055
  10. SYMBICORT PMDI [Suspect]
     Indication: EMPHYSEMA
     Dosage: 160/4.5 MICROGRAMS, UNKNOWN FREQUENCY
     Route: 055
  11. SYMBICORT PMDI [Suspect]
     Indication: ASTHMA
     Dosage: 160/4.5 MICROGRAMS, UNKNOWN FREQUENCY
     Route: 055
  12. SYMBICORT PMDI [Suspect]
     Indication: MULTIPLE ALLERGIES
     Dosage: 160/4.5 MICROGRAMS, UNKNOWN FREQUENCY
     Route: 055
  13. SYMBICORT PMDI [Suspect]
     Indication: CHRONIC OBSTRUCTIVE PULMONARY DISEASE
     Dosage: 160/4.5 MCG, 2 PUFFS TWO TIMES A DAY
     Route: 055
  14. SYMBICORT PMDI [Suspect]
     Indication: EMPHYSEMA
     Dosage: 160/4.5 MCG, 2 PUFFS TWO TIMES A DAY
     Route: 055
  15. SYMBICORT PMDI [Suspect]
     Indication: ASTHMA
     Dosage: 160/4.5 MCG, 2 PUFFS TWO TIMES A DAY
     Route: 055
  16. SYMBICORT PMDI [Suspect]
     Indication: MULTIPLE ALLERGIES
     Dosage: 160/4.5 MCG, 2 PUFFS TWO TIMES A DAY
     Route: 055
  17. PRILOSEC [Suspect]
     Indication: GASTROOESOPHAGEAL REFLUX DISEASE
     Route: 048
     Dates: start: 2010
  18. PROTONIX [Concomitant]
     Indication: GASTROOESOPHAGEAL REFLUX DISEASE
     Route: 048
     Dates: start: 2010
  19. BENTYL [Concomitant]
     Indication: DIVERTICULITIS
     Dosage: AS REQUIRED
     Route: 048
     Dates: start: 2010
  20. QUINIDINE [Concomitant]
     Indication: HYPERTENSION
     Route: 048
  21. ATIVAN [Concomitant]
     Indication: STRESS
  22. XANAX [Concomitant]
     Indication: STRESS

REACTIONS (17)
  - Pulmonary function test decreased [Unknown]
  - Gastrooesophageal reflux disease [Unknown]
  - Diverticulitis [Unknown]
  - Chest pain [Unknown]
  - Cardiac disorder [Unknown]
  - Multiple chemical sensitivity [Unknown]
  - Oral discomfort [Unknown]
  - Glossodynia [Unknown]
  - Asthenia [Unknown]
  - Adverse event [Unknown]
  - Cough [Unknown]
  - Stress [Unknown]
  - Dizziness [Unknown]
  - Throat irritation [Unknown]
  - Drug effect decreased [Unknown]
  - Circumstance or information capable of leading to medication error [Unknown]
  - Intentional product misuse [Unknown]
